FAERS Safety Report 4887300-6 (Version None)
Quarter: 2005Q4

REPORT INFORMATION
  Report Type: 
  Country: None (occurrence: None)
  Receive Date: 20051221
  Receipt Date: 20051011
  Transmission Date: 20060501
  Serious: No
  Sender: FDA-Public Use
  Company Number: US-YAMANOUCHI-YPA20050529

PATIENT

DRUGS (2)
  1. VESICARE [Suspect]
  2. VESICARE [Suspect]

REACTIONS (1)
  - BACK PAIN [None]
